FAERS Safety Report 9470892 (Version 1)
Quarter: 2013Q3

REPORT INFORMATION
  Report Type: Spontaneous
  Country: US (occurrence: None)
  Receive Date: 20130820
  Receipt Date: 20130820
  Transmission Date: 20140515
  Serious: Yes (Life-Threatening, Other)
  Sender: FDA-Public Use
  Company Number: None

PATIENT
  Age: 80 Year
  Sex: Female
  Weight: 69.85 kg

DRUGS (3)
  1. AMLODIPINE BESYLATE [Suspect]
     Indication: BLOOD PRESSURE INCREASED
     Dosage: ^CHILD-RESISTANT^ CARTON (WITH ^PRESS + HOLD^ CIRCLE) SHOW BOTH SAM^S CLUB AND WALMART LOGOS (NO MANUF ID)?STRENGTH:  10 MG PER TABLET?QUANTITY:  3 CARTONS WITH30 TABLETS IN EACH CARTON (IN FOIL CARD) ?FREQUENCY:  ONE TABLET PER DAY ?HOW:  BY MOUTH?
     Route: 048
     Dates: start: 20130709
  2. LOSARTAN/HCT [Concomitant]
  3. ASPIRIN [Concomitant]

REACTIONS (5)
  - Drug ineffective [None]
  - Product quality issue [None]
  - Blood pressure increased [None]
  - Bedridden [None]
  - Dizziness [None]
